FAERS Safety Report 4772700-5 (Version None)
Quarter: 2005Q3

REPORT INFORMATION
  Report Type: 
  Country: None (occurrence: None)
  Receive Date: 20050919
  Receipt Date: 20050912
  Transmission Date: 20060218
  Serious: Yes (Other)
  Sender: FDA-Public Use
  Company Number: US-GLAXOSMITHKLINE-A0573750A

PATIENT
  Age: 75 Year
  Sex: Female
  Weight: 53.6 kg

DRUGS (5)
  1. TOSITUMOMAB [Suspect]
     Indication: NON-HODGKIN'S LYMPHOMA
     Dosage: 450MG SINGLE DOSE
     Route: 042
     Dates: start: 20000607, end: 20000607
  2. IODINE I 131 TOSITUMOMAB [Suspect]
     Indication: NON-HODGKIN'S LYMPHOMA
     Dosage: 4.84MCI SINGLE DOSE
     Route: 042
     Dates: start: 20000607, end: 20000607
  3. TOSITUMOMAB [Suspect]
     Dosage: 450MG SINGLE DOSE
     Route: 042
     Dates: start: 20000616, end: 20000616
  4. IODINE I 131 TOSITUMOMAB [Suspect]
     Dosage: 57.7MCI SINGLE DOSE
     Route: 042
     Dates: start: 20000616, end: 20000616
  5. ARANESP [Concomitant]
     Dates: start: 20050420

REACTIONS (1)
  - MYELODYSPLASTIC SYNDROME [None]
